FAERS Safety Report 9029077 (Version 1)
Quarter: 2013Q1

REPORT INFORMATION
  Report Type: Spontaneous
  Country: US (occurrence: US)
  Receive Date: 20130122
  Receipt Date: 20130122
  Transmission Date: 20140127
  Serious: Yes (Other)
  Sender: FDA-Public Use
  Company Number: US-ASTRAZENECA-2010SE47744

PATIENT
  Age: 65 Year
  Sex: Female

DRUGS (3)
  1. ATACAND [Suspect]
     Route: 048
  2. NEXIUM [Suspect]
     Route: 048
  3. CRESTOR [Suspect]
     Route: 048

REACTIONS (13)
  - Arterial occlusive disease [Unknown]
  - Dyspnoea [Unknown]
  - Limb discomfort [Unknown]
  - Gait disturbance [Unknown]
  - Chronic obstructive pulmonary disease [Unknown]
  - Regurgitation [Unknown]
  - Gastrooesophageal reflux disease [Unknown]
  - Blood cholesterol increased [Unknown]
  - Blood triglycerides increased [Unknown]
  - Malaise [Unknown]
  - Gastric disorder [Unknown]
  - Pain [Unknown]
  - Drug dose omission [Unknown]
